FAERS Safety Report 21178153 (Version 3)
Quarter: 2022Q3

REPORT INFORMATION
  Report Type: Other
  Country: CA (occurrence: None)
  Receive Date: 20220805
  Receipt Date: 20220816
  Transmission Date: 20221026
  Serious: Yes (Other)
  Sender: FDA-Public Use
  Company Number: CA-ROCHE-3148562

PATIENT
  Age: 38 Year
  Sex: Female
  Weight: 167 kg

DRUGS (4)
  1. OCREVUS [Suspect]
     Active Substance: OCRELIZUMAB
     Indication: Relapsing-remitting multiple sclerosis
     Dosage: 300 MG AT DAY 0 AND 14, THEN 600 MG EVERY 6 MONTH
     Route: 042
     Dates: start: 20201104
  2. IRON [Concomitant]
     Active Substance: IRON
     Dates: start: 202203
  3. HERBALS [Concomitant]
     Active Substance: HERBALS
  4. FISH OIL [Concomitant]
     Active Substance: FISH OIL
     Dates: start: 202203

REACTIONS (3)
  - COVID-19 [Recovered/Resolved]
  - Maternal exposure during pregnancy [Unknown]
  - Abortion spontaneous [Unknown]

NARRATIVE: CASE EVENT DATE: 20220501
